FAERS Safety Report 15491445 (Version 2)
Quarter: 2018Q4

REPORT INFORMATION
  Report Type: Report from Study
  Country: None (occurrence: DO)
  Receive Date: 20181012
  Receipt Date: 20181101
  Transmission Date: 20190205
  Serious: Yes (Other)
  Sender: FDA-Public Use
  Company Number: DO-ABBVIE-18K-279-2517378-00

PATIENT
  Age: 49 Year
  Sex: Female

DRUGS (1)
  1. HUMIRA [Suspect]
     Active Substance: ADALIMUMAB
     Indication: CROHN^S DISEASE
     Route: 058
     Dates: start: 20150319

REACTIONS (7)
  - Sensation of foreign body [Recovering/Resolving]
  - Constipation [Not Recovered/Not Resolved]
  - Pain [Recovering/Resolving]
  - Colpocele [Recovering/Resolving]
  - Discomfort [Recovering/Resolving]
  - Urinary retention [Recovering/Resolving]
  - Micturition urgency [Recovering/Resolving]

NARRATIVE: CASE EVENT DATE: 20180410
